FAERS Safety Report 9618513 (Version 2)
Quarter: 2013Q4

REPORT INFORMATION
  Report Type: Spontaneous
  Country: US (occurrence: US)
  Receive Date: 20131014
  Receipt Date: 20131112
  Transmission Date: 20140711
  Serious: No
  Sender: FDA-Public Use
  Company Number: US-PFIZER INC-2013291009

PATIENT
  Age: 51 Year
  Sex: Male

DRUGS (10)
  1. VIAGRA [Suspect]
     Dosage: 100 MG, UNK
  2. ALTACE [Concomitant]
     Dosage: 2.5
  3. ASPIRIN [Concomitant]
     Dosage: 81 MG, UNK
  4. CRESTOR [Concomitant]
     Dosage: 20 MG, UNK
  5. LASIX [Concomitant]
     Dosage: 80 MG, UNK
  6. METFORMIN [Concomitant]
     Dosage: 500 MG, UNK
  7. METHADONE [Concomitant]
     Dosage: 10 MG, UNK
  8. SYNTHROID [Concomitant]
     Dosage: 200 UG, UNK
  9. TESTOSTERONE [Concomitant]
     Dosage: 200 MG/ML, UNK
  10. PLAQUENIL [Concomitant]
     Dosage: 200 MG, UNK
     Dates: start: 2013, end: 20131014

REACTIONS (1)
  - Drug ineffective [Unknown]
